FAERS Safety Report 12592469 (Version 1)
Quarter: 2016Q3

REPORT INFORMATION
  Report Type: Spontaneous
  Country: US (occurrence: None)
  Receive Date: 20160725
  Receipt Date: 20160725
  Transmission Date: 20161109
  Serious: Yes (Life-Threatening, Hospitalization)
  Sender: FDA-Public Use
  Company Number: None

PATIENT
  Age: 59 Year
  Sex: Male

DRUGS (5)
  1. MAGNESIUM [Concomitant]
     Active Substance: MAGNESIUM
  2. VITAMIN B12 [Concomitant]
     Active Substance: CYANOCOBALAMIN
  3. XOLAIR [Suspect]
     Active Substance: OMALIZUMAB
     Indication: ASTHMA
     Dosage: 300 MG RECONSTITUTED WITH 1.4 ML WATER  Q4W SQ
     Route: 058
     Dates: start: 20150904
  4. IRON [Concomitant]
     Active Substance: IRON
  5. POTASSIUM [Concomitant]
     Active Substance: POTASSIUM

REACTIONS (3)
  - Myocardial infarction [None]
  - Loss of consciousness [None]
  - Coronary artery occlusion [None]

NARRATIVE: CASE EVENT DATE: 20160717
